FAERS Safety Report 7530200-3 (Version None)
Quarter: 2011Q2

REPORT INFORMATION
  Report Type: 
  Country: None (occurrence: None)
  Receive Date: 20110607
  Receipt Date: 20110531
  Transmission Date: 20111010
  Serious: Yes (Other)
  Sender: FDA-Public Use
  Company Number: A0929617A

PATIENT
  Age: 32 Year
  Sex: Male

DRUGS (1)
  1. ALLI [Suspect]
     Indication: WEIGHT LOSS DIET
     Route: 048
     Dates: start: 20110101, end: 20110101

REACTIONS (8)
  - ABDOMINAL DISTENSION [None]
  - FLATULENCE [None]
  - FREQUENT BOWEL MOVEMENTS [None]
  - FAECES DISCOLOURED [None]
  - MUCOUS STOOLS [None]
  - PANCREATITIS [None]
  - DIARRHOEA [None]
  - DEFAECATION URGENCY [None]
